FAERS Safety Report 26011510 (Version 2)
Quarter: 2025Q4

REPORT INFORMATION
  Report Type: Report from Study
  Country: US (occurrence: US)
  Receive Date: 20251107
  Receipt Date: 20251120
  Transmission Date: 20260117
  Serious: Yes (Other)
  Sender: ALEXION PHARMACEUTICALS
  Company Number: US-ASTRAZENECA-202510NAM032195US

PATIENT
  Age: 13 Year
  Sex: Male

DRUGS (1)
  1. STRENSIQ [Suspect]
     Active Substance: ASFOTASE ALFA
     Indication: Phosphorus metabolism disorder
     Dosage: 80 MILLIGRAM, TIW
     Route: 065

REACTIONS (13)
  - Autism spectrum disorder [Unknown]
  - Injection site atrophy [Unknown]
  - Injection site erythema [Unknown]
  - Decreased appetite [Unknown]
  - Migraine [Unknown]
  - Gastrooesophageal reflux disease [Unknown]
  - Vomiting [Unknown]
  - Constipation [Unknown]
  - Asthenia [Unknown]
  - Hypotonia [Unknown]
  - Skin discolouration [Unknown]
  - Optic nerve disorder [Unknown]
  - Product dose omission issue [Unknown]
